FAERS Safety Report 6195293-7 (Version None)
Quarter: 2009Q2

REPORT INFORMATION
  Report Type: 
  Country: None (occurrence: None)
  Receive Date: 20090515
  Receipt Date: 20090511
  Transmission Date: 20091009
  Serious: Yes (Death, Hospitalization)
  Sender: FDA-Public Use
  Company Number: 2009US000652

PATIENT
  Age: 51 Year
  Sex: Female

DRUGS (24)
  1. PROGRAF [Suspect]
     Indication: BONE MARROW TRANSPLANT
     Dosage: 1 MG, BID, ORAL
     Route: 048
     Dates: start: 20080101
  2. PREDNISONE TAB [Concomitant]
  3. VANCOMYCIN [Concomitant]
  4. PEN-VEE K [Concomitant]
  5. POSACONAZOLE [Concomitant]
  6. ZOVIRAX [Concomitant]
  7. PEPCID [Concomitant]
  8. FOLIC ACID [Concomitant]
  9. MAGNESIUM (MAGNESIUM) [Concomitant]
  10. POTASSIUM CHLORIDE [Concomitant]
  11. OVRAL (LEVONORGESTREL) [Concomitant]
  12. ACTIGALL [Concomitant]
  13. LANTUS [Concomitant]
  14. CARDIZEM [Concomitant]
  15. TRIAMCINOLONE [Concomitant]
  16. AQUAPHOR HEALING (CERESIN, PARAFFIN, LIQUID, BISABOLOL, PARAFFIN SOFT, [Concomitant]
  17. PRED FORTE [Concomitant]
  18. TEARISOL (METHYLCELLULOSE) [Concomitant]
  19. COMPAZINE (PROCHLORPERAZINE MALEATE) [Concomitant]
  20. ATIVAN [Concomitant]
  21. TYLENOL [Concomitant]
  22. OXYCODONE HCL [Concomitant]
  23. HYCODAN [Concomitant]
  24. AMBIEN [Concomitant]

REACTIONS (4)
  - CHRONIC GRAFT VERSUS HOST DISEASE [None]
  - LEUKAEMIA RECURRENT [None]
  - NERVOUS SYSTEM DISORDER [None]
  - SEPSIS [None]
